FAERS Safety Report 4831036-4 (Version None)
Quarter: 2005Q4

REPORT INFORMATION
  Report Type: 
  Country: None (occurrence: None)
  Receive Date: 20051118
  Receipt Date: 20050711
  Transmission Date: 20060501
  Serious: Yes (Hospitalization)
  Sender: FDA-Public Use
  Company Number: FR-BOEHRINGER INGELHEIM PHARMACEUTICALS, INC.-2005-FF-00507FF

PATIENT
  Sex: Male
  Weight: 49 kg

DRUGS (9)
  1. TIPRANAVIR + RITONAVIR CO-ADMIN [Suspect]
     Indication: HIV INFECTION
     Dosage: TPV/RTV: 500/200 MG B.I.D.
     Route: 048
     Dates: start: 20050420
  2. ZIAGEN [Concomitant]
     Indication: HIV INFECTION
     Route: 048
     Dates: start: 20050420
  3. VIREAD [Concomitant]
     Indication: HIV INFECTION
     Route: 048
     Dates: start: 20050420
  4. FUZEON [Concomitant]
     Indication: HIV INFECTION
     Route: 058
  5. IZILOX [Concomitant]
     Route: 048
     Dates: start: 20050316
  6. ZECLAR [Concomitant]
     Route: 048
     Dates: start: 20050316
  7. DEXAMBUTOL [Concomitant]
     Route: 048
     Dates: start: 20050415
  8. BACTRIM [Concomitant]
     Dosage: ONE TABLET DAILY
     Route: 048
     Dates: start: 20020809
  9. MEPRONIZINE [Concomitant]
     Dosage: ONE TABLET DAILY
     Route: 048
     Dates: start: 20031021

REACTIONS (1)
  - OESOPHAGEAL CANDIDIASIS [None]
